FAERS Safety Report 5071538-1 (Version None)
Quarter: 2006Q3

REPORT INFORMATION
  Report Type: 
  Country: None (occurrence: None)
  Receive Date: 20060714
  Receipt Date: 20060601
  Transmission Date: 20061208
  Serious: No
  Sender: FDA-Public Use
  Company Number: 2006SP002286

PATIENT
  Age: 55 Year
  Sex: Male
  Weight: 94.3482 kg

DRUGS (7)
  1. LUNESTA [Suspect]
     Indication: INSOMNIA
     Dosage: SEE IMAGE
     Route: 048
     Dates: start: 20050725, end: 20050731
  2. LUNESTA [Suspect]
     Indication: INSOMNIA
     Dosage: SEE IMAGE
     Route: 048
     Dates: start: 20050801, end: 20060501
  3. LUNESTA [Suspect]
     Indication: INSOMNIA
     Dosage: SEE IMAGE
     Route: 048
     Dates: start: 20060528, end: 20060529
  4. LUNESTA [Suspect]
     Indication: INSOMNIA
     Dosage: SEE IMAGE
     Route: 048
     Dates: start: 20060530
  5. HYDROXYZINE [Suspect]
     Indication: INSOMNIA
     Dosage: HS;ORAL
     Route: 048
     Dates: start: 20050801, end: 20060501
  6. LEXAPRO [Suspect]
     Indication: INSOMNIA
     Dosage: HS;ORAL
     Route: 048
     Dates: start: 20050801, end: 20060501
  7. TAMSULOSIN HCL [Concomitant]

REACTIONS (3)
  - BACK PAIN [None]
  - DRUG INEFFECTIVE [None]
  - MIDDLE INSOMNIA [None]
